FAERS Safety Report 5721268-5 (Version None)
Quarter: 2008Q2

REPORT INFORMATION
  Report Type: 
  Country: None (occurrence: None)
  Receive Date: 20080424
  Receipt Date: 20080410
  Transmission Date: 20081010
  Serious: Yes (Other)
  Sender: FDA-Public Use
  Company Number: 2008-02447

PATIENT
  Age: 78 Year
  Sex: Male

DRUGS (2)
  1. FORTAMET [Suspect]
     Indication: TYPE 2 DIABETES MELLITUS
  2. GLICLAZILE (GLICLAZIDE) [Concomitant]

REACTIONS (2)
  - NEUROPATHY PERIPHERAL [None]
  - VITAMIN B12 DEFICIENCY [None]
